FAERS Safety Report 22219766 (Version 1)
Quarter: 2023Q2

REPORT INFORMATION
  Report Type: Report from Study
  Country: CN (occurrence: CN)
  Receive Date: 20230417
  Receipt Date: 20230417
  Transmission Date: 20230722
  Serious: Yes (Death, Life-Threatening, Other)
  Sender: FDA-Public Use
  Company Number: CN-Merck Healthcare KGaA-9395606

PATIENT
  Age: 25 Year
  Sex: Male

DRUGS (16)
  1. CETUXIMAB [Suspect]
     Active Substance: CETUXIMAB
     Indication: Rectal cancer metastatic
     Dosage: 500 MG/M2, UNKNOWN
     Route: 042
     Dates: start: 20200711
  2. CETUXIMAB [Suspect]
     Active Substance: CETUXIMAB
     Dosage: SECOND
     Route: 042
     Dates: start: 20200831
  3. CETUXIMAB [Suspect]
     Active Substance: CETUXIMAB
     Dosage: 250 MG/M2, WEEKLY (1/W)
     Route: 042
     Dates: start: 20200916, end: 20201007
  4. CETUXIMAB [Suspect]
     Active Substance: CETUXIMAB
     Dosage: EIGHT
     Route: 042
     Dates: start: 20201014
  5. FLUOROURACIL [Suspect]
     Active Substance: FLUOROURACIL
     Indication: Rectal cancer metastatic
     Dosage: FIRST CYCLE
     Route: 065
     Dates: start: 20200625
  6. FLUOROURACIL [Suspect]
     Active Substance: FLUOROURACIL
     Dosage: SECOND CYCLE
     Route: 065
     Dates: start: 20200711
  7. FLUOROURACIL [Suspect]
     Active Substance: FLUOROURACIL
     Dosage: THIRD CYCLE
     Route: 065
     Dates: start: 20200831
  8. OXALIPLATIN [Suspect]
     Active Substance: OXALIPLATIN
     Indication: Rectal cancer metastatic
     Dosage: THIRD CYCLE
     Route: 065
     Dates: start: 20200625
  9. OXALIPLATIN [Suspect]
     Active Substance: OXALIPLATIN
     Dosage: SECOND CYCLE
     Route: 065
     Dates: start: 20200711
  10. OXALIPLATIN [Suspect]
     Active Substance: OXALIPLATIN
     Dosage: THIRD CYCLE
     Route: 065
     Dates: start: 20200831
  11. LEUCOVORIN [Suspect]
     Active Substance: LEUCOVORIN
     Indication: Rectal cancer metastatic
     Dosage: FIRST CYCLE
     Route: 065
     Dates: start: 20200625
  12. LEUCOVORIN [Suspect]
     Active Substance: LEUCOVORIN
     Dosage: SECOND CYCLE
     Route: 065
     Dates: start: 20200711
  13. LEUCOVORIN [Suspect]
     Active Substance: LEUCOVORIN
     Dosage: THIRD CYCLE
     Route: 065
     Dates: start: 20200831
  14. DEXAMETHASONE [Concomitant]
     Active Substance: DEXAMETHASONE
     Indication: Allergy prophylaxis
     Dosage: UNK UNK, UNKNOWN
     Route: 065
  15. DIPHENHYDRAMINE [Concomitant]
     Active Substance: DIPHENHYDRAMINE
     Indication: Allergy prophylaxis
     Dosage: UNK, UNKNOWN
     Route: 065
  16. CIMETIDINE [Concomitant]
     Active Substance: CIMETIDINE
     Indication: Allergy prophylaxis
     Dosage: UNK, UNKNOWN
     Route: 065

REACTIONS (9)
  - Death [Fatal]
  - Disseminated intravascular coagulation [Unknown]
  - White blood cell count increased [Unknown]
  - Neutrophil count increased [Unknown]
  - Transaminases increased [Unknown]
  - Rash pustular [Unknown]
  - Rash pustular [Unknown]
  - Rash [Recovering/Resolving]
  - Off label use [Unknown]

NARRATIVE: CASE EVENT DATE: 20201016
